APPROVED DRUG PRODUCT: SDAMLO
Active Ingredient: AMLODIPINE BESYLATE
Strength: EQ 5MG BASE/BOT
Dosage Form/Route: FOR SOLUTION;ORAL
Application: N219531 | Product #002
Applicant: BRILLIAN PHARMA INC
Approved: Jul 24, 2025 | RLD: Yes | RS: Yes | Type: RX